FAERS Safety Report 13015142 (Version 1)
Quarter: 2016Q4

REPORT INFORMATION
  Report Type: Spontaneous
  Country: CA (occurrence: CA)
  Receive Date: 20161211
  Receipt Date: 20161211
  Transmission Date: 20170207
  Serious: Yes (Other)
  Sender: FDA-Public Use
  Company Number: CA-JNJFOC-20161205885

PATIENT
  Sex: Male
  Weight: 90.72 kg

DRUGS (5)
  1. TYLENOL EXTRA STRENGTH EZTAB [Suspect]
     Active Substance: ACETAMINOPHEN
     Indication: HEADACHE
     Dosage: 2 EACH TIME, 10-12 PILLS A DAY FOR A MONTH
     Route: 048
     Dates: start: 2016, end: 2016
  2. TYLENOL EXTRA STRENGTH EZTAB [Suspect]
     Active Substance: ACETAMINOPHEN
     Indication: NECK PAIN
     Dosage: 2 EACH TIME, 10-12 PILLS A DAY FOR A MONTH
     Route: 048
     Dates: start: 2016, end: 2016
  3. VALSARTAN. [Concomitant]
     Active Substance: VALSARTAN
     Indication: HYPERTENSION
     Dosage: 1 DOSE DAILY, 25-30 YEARS
     Route: 065
  4. METOPROLOL. [Concomitant]
     Active Substance: METOPROLOL
     Indication: HYPERTENSION
     Dosage: 1 DAILY, 25-30 YEARS
     Route: 065
  5. NICODERM CQ [Concomitant]
     Active Substance: NICOTINE
     Indication: SMOKING CESSATION THERAPY
     Dosage: 1 PATCH, DAILY
     Route: 061
     Dates: start: 2016, end: 2016

REACTIONS (1)
  - Overdose [Unknown]

NARRATIVE: CASE EVENT DATE: 2016
